FAERS Safety Report 16536428 (Version 1)
Quarter: 2019Q3

REPORT INFORMATION
  Report Type: Spontaneous
  Country: JP (occurrence: JP)
  Receive Date: 20190706
  Receipt Date: 20190706
  Transmission Date: 20191004
  Serious: Yes (Hospitalization, Other)
  Sender: FDA-Public Use
  Company Number: JP-LUPIN PHARMACEUTICALS INC.-2019-04062

PATIENT
  Age: 88 Year
  Sex: Male
  Weight: 51.9 kg

DRUGS (4)
  1. PYRAZINAMIDE. [Suspect]
     Active Substance: PYRAZINAMIDE
     Indication: PULMONARY TUBERCULOSIS
     Dosage: 25 MILLIGRAM/KILOGRAM, UNK (MAX 1500 MG)
     Route: 048
  2. ETHAMBUTOL [Suspect]
     Active Substance: ETHAMBUTOL HYDROCHLORIDE
     Indication: PULMONARY TUBERCULOSIS
     Dosage: 15 MILLIGRAM/KILOGRAM, UNK (MAX 750 MG)
     Route: 048
  3. ISONIAZID. [Suspect]
     Active Substance: ISONIAZID
     Indication: PULMONARY TUBERCULOSIS
     Dosage: 5 MILLIGRAM/KILOGRAM, UNK (MAX 300 MG)
     Route: 048
  4. RIFAMPIN. [Suspect]
     Active Substance: RIFAMPIN
     Indication: PULMONARY TUBERCULOSIS
     Dosage: 10 MILLIGRAM/KILOGRAM, UNK (MAX 600 MG)
     Route: 048

REACTIONS (1)
  - Liver injury [Recovering/Resolving]
